FAERS Safety Report 11798421 (Version 1)
Quarter: 2015Q4

REPORT INFORMATION
  Report Type: Spontaneous
  Country: CA (occurrence: CA)
  Receive Date: 20151203
  Receipt Date: 20151203
  Transmission Date: 20160305
  Serious: Yes (Other)
  Sender: FDA-Public Use
  Company Number: CA-TEVA-613239ACC

PATIENT
  Sex: Female

DRUGS (6)
  1. QUININE [Concomitant]
     Active Substance: QUININE
  2. COVERSYL [Concomitant]
     Active Substance: PERINDOPRIL
  3. CLARITIN [Concomitant]
     Active Substance: LORATADINE
  4. CLOBETASOL PROPIONATE. [Concomitant]
     Active Substance: CLOBETASOL PROPIONATE
  5. FAMOTIDINE TABLETS USP [Suspect]
     Active Substance: FAMOTIDINE
     Indication: HERNIA
     Dosage: 20 MILLIGRAM DAILY;
     Route: 048
  6. BENADRYL [Concomitant]
     Active Substance: DIPHENHYDRAMINE HYDROCHLORIDE

REACTIONS (1)
  - Blood pressure systolic increased [Recovered/Resolved]
